FAERS Safety Report 6594892-8 (Version None)
Quarter: 2010Q1

REPORT INFORMATION
  Report Type: 
  Country: None (occurrence: None)
  Receive Date: 20100222
  Receipt Date: 20100210
  Transmission Date: 20100710
  Serious: Yes (Hospitalization)
  Sender: FDA-Public Use
  Company Number: JP-PFIZER INC-2010008308

PATIENT
  Age: 79 Year
  Sex: Female
  Weight: 65 kg

DRUGS (8)
  1. CELECOX [Suspect]
     Indication: LUMBAR SPINAL STENOSIS
     Dosage: 100 MG, 2X/DAY
     Route: 048
     Dates: start: 20090917, end: 20091002
  2. DEPAS [Concomitant]
     Dosage: UNK
     Dates: start: 20070125
  3. MYSLEE [Concomitant]
     Dosage: 10 MG, UNK
     Dates: start: 20070125
  4. GASTER [Concomitant]
     Dosage: 10 MG, UNK
     Dates: start: 20070125
  5. PRORENAL [Concomitant]
     Dosage: UNK
     Dates: start: 20070125
  6. GASMOTIN [Concomitant]
     Dosage: UNK
     Dates: start: 20070125
  7. NORVASC [Concomitant]
     Dosage: UNK
     Dates: start: 20070125
  8. SERMION [Concomitant]
     Dosage: UNK
     Dates: start: 20070125

REACTIONS (2)
  - LUNG DISORDER [None]
  - RASH [None]
